FAERS Safety Report 8907913 (Version 1)
Quarter: 2012Q4

REPORT INFORMATION
  Report Type: 
  Country: US (occurrence: US)
  Receive Date: 20121114
  Receipt Date: 20121114
  Transmission Date: 20130627
  Serious: Yes (Hospitalization)
  Sender: FDA-Public Use
  Company Number: US-BRISTOL-MYERS SQUIBB COMPANY-17030883

PATIENT
  Sex: Female

DRUGS (2)
  1. SPRYCEL [Suspect]
  2. INTERFERON [Concomitant]
     Dosage: Injection

REACTIONS (2)
  - Road traffic accident [Unknown]
  - Pleural effusion [Unknown]
